FAERS Safety Report 5916929-9 (Version None)
Quarter: 2008Q4

REPORT INFORMATION
  Report Type: 
  Country: None (occurrence: None)
  Receive Date: 20081013
  Receipt Date: 20081006
  Transmission Date: 20090506
  Serious: Yes (Hospitalization, Other)
  Sender: FDA-Public Use
  Company Number: US-ROXANE LABORATORIES, INC.-2008-RO-00104RO

PATIENT
  Age: 5 Year
  Sex: Female

DRUGS (12)
  1. DIGOXIN [Suspect]
  2. FUROSEMIDE [Suspect]
     Indication: CHYLOTHORAX
     Dates: start: 20050401
  3. SPIRONOLACTONE [Suspect]
     Indication: CHYLOTHORAX
     Dates: start: 20050401
  4. CAPTOPRIL [Suspect]
  5. TOTAL PARENTAL NUTRITION [Suspect]
     Indication: CHYLOTHORAX
     Dates: start: 20050401
  6. HEPARIN [Suspect]
     Indication: CHYLOTHORAX
     Dates: start: 20050401
  7. OXYGEN [Suspect]
     Indication: CHYLOTHORAX
  8. STEROIDS [Suspect]
     Indication: CHYLOTHORAX
     Dates: start: 20050401
  9. ALBUMIN (HUMAN) [Suspect]
     Indication: CHYLOTHORAX
     Dates: start: 20050401
  10. TOLEREX [Suspect]
     Indication: CHYLOTHORAX
  11. DIURETICS [Suspect]
     Indication: CHYLOTHORAX
  12. HEPARIN [Concomitant]
     Indication: STENT PLACEMENT

REACTIONS (6)
  - COARCTATION OF THE AORTA [None]
  - DRUG INEFFECTIVE [None]
  - GENERALISED OEDEMA [None]
  - HEPATOMEGALY [None]
  - PROTEIN-LOSING GASTROENTEROPATHY [None]
  - PULMONARY ARTERY STENOSIS [None]
